FAERS Safety Report 18485283 (Version 3)
Quarter: 2020Q4

REPORT INFORMATION
  Report Type: Spontaneous
  Country: JP (occurrence: JP)
  Receive Date: 20201110
  Receipt Date: 20201117
  Transmission Date: 20210114
  Serious: Yes (Life-Threatening, Hospitalization, Other)
  Sender: FDA-Public Use
  Company Number: JP-SA-2020SA313932

PATIENT

DRUGS (1)
  1. DOCETAXEL. [Suspect]
     Active Substance: DOCETAXEL
     Indication: LUNG SQUAMOUS CELL CARCINOMA STAGE III
     Dosage: UNK
     Route: 065
     Dates: start: 201912

REACTIONS (5)
  - Condition aggravated [Recovering/Resolving]
  - Metastases to skin [Unknown]
  - Skin mass [Unknown]
  - Disseminated varicella zoster virus infection [Recovering/Resolving]
  - Viral rash [Recovering/Resolving]

NARRATIVE: CASE EVENT DATE: 202004
